FAERS Safety Report 23311038 (Version 1)
Quarter: 2023Q4

REPORT INFORMATION
  Report Type: Spontaneous
  Country: GB (occurrence: GB)
  Receive Date: 20231218
  Receipt Date: 20231218
  Transmission Date: 20240109
  Serious: Yes (Hospitalization, Other)
  Sender: FDA-Public Use
  Company Number: None

PATIENT
  Age: 71 Year
  Sex: Male

DRUGS (24)
  1. MYCOPHENOLATE MOFETIL [Suspect]
     Active Substance: MYCOPHENOLATE MOFETIL
     Indication: Product used for unknown indication
     Dosage: UNK
     Route: 065
  2. VALGANCICLOVIR [Suspect]
     Active Substance: VALGANCICLOVIR
     Indication: Product used for unknown indication
     Dosage: UNK
     Route: 065
     Dates: start: 20230705
  3. CALCIUM CARBONATE\CHOLECALCIFEROL [Concomitant]
     Active Substance: CALCIUM CARBONATE\CHOLECALCIFEROL
     Indication: Product used for unknown indication
     Dosage: 1 DOSAGE FORM, BID (TUTTI FRUTTI, ONE TO BE TAKEN TWICE A DAY)
     Route: 065
  4. TACROLIMUS [Concomitant]
     Active Substance: TACROLIMUS
     Indication: Product used for unknown indication
     Dosage: 4 MILLIGRAM, BID (CAPSULES TWO TABLETS TO BE TAKEN TWICE A DAY (0800HRS AND 2000HRS))
     Route: 065
  5. AMLODIPINE [Concomitant]
     Active Substance: AMLODIPINE BESYLATE
     Indication: Product used for unknown indication
     Dosage: 1 DOSAGE FORM, QD  ONE TO BE TAKEN EACH DAY)
     Route: 065
  6. ARANESP [Concomitant]
     Active Substance: DARBEPOETIN ALFA
     Indication: Product used for unknown indication
     Dosage: UNK, ONCE WEEKLY (ONCE WEEKLY ON A WEDNESDAY-STATES DAY CHANGED TO FRIDAYS- ADMINISTERED ON SATURDAY
     Route: 065
  7. ASPIRIN [Concomitant]
     Active Substance: ASPIRIN
     Indication: Product used for unknown indication
     Dosage: 1 DOSAGE FORM, QD (ONE TO BE TAKEN EACH DAY)
     Route: 065
  8. Balneum Plus [Concomitant]
     Indication: Product used for unknown indication
     Dosage: UNK, PRN (APPLY AS REQUIRED)
     Route: 065
  9. BISOPROLOL [Concomitant]
     Active Substance: BISOPROLOL\BISOPROLOL FUMARATE
     Indication: Product used for unknown indication
     Dosage: 1 DOSAGE FORM, OD (ONE TABLET ONCE DAILY)
     Route: 065
  10. CITALOPRAM [Concomitant]
     Active Substance: CITALOPRAM HYDROBROMIDE
     Indication: Product used for unknown indication
     Dosage: 1 DOSAGE FORM, QD (ONE TO BE TAKEN EACH DAY)
     Route: 065
  11. FERROUS SULFATE [Concomitant]
     Active Substance: FERROUS SULFATE
     Indication: Product used for unknown indication
     Dosage: 1 DOSAGE FORM, BID (ONE TO BE TAKEN TWICE A DAY)
     Route: 065
  12. FOLIC ACID [Concomitant]
     Active Substance: FOLIC ACID
     Indication: Product used for unknown indication
     Dosage: 1 DOSAGE FORM, QD (ONE TO BE TAKEN EACH DAY)
     Route: 065
  13. Humulin I kwikpen [Concomitant]
     Indication: Product used for unknown indication
     Dosage: 8 UNITS, QD (100 UNITS/ML SUSPENSION FOR INJECTION 3ML PRE-FILLED PENS 8 UNITS TO BE GIVEN SUBCUTANE
     Route: 058
  14. LACTULOSE [Concomitant]
     Active Substance: LACTULOSE
     Indication: Product used for unknown indication
     Dosage: UNK MILLILITER, BID (3.1-3.7G/5ML ORAL SOLUTION ONE TO THREE 5ML SPOONFULS TO BE TAKEN TWICE A DAY)
     Route: 048
  15. LINAGLIPTIN [Concomitant]
     Active Substance: LINAGLIPTIN
     Indication: Product used for unknown indication
     Dosage: 1 DOSAGE FORM, QD (ONE TO BE TAKEN EACH DAY)
     Route: 065
  16. LORATADINE [Concomitant]
     Active Substance: LORATADINE
     Indication: Product used for unknown indication
     Dosage: 1 DOSAGE FORM, PRN (ONE TO BE TAKEN EACH DAY AS REQUIRED)
     Route: 065
     Dates: start: 20230705
  17. OILATUM PLUS [Concomitant]
     Indication: Product used for unknown indication
     Dosage: UNK (BATH ADDITIVE ADD ONE TO TWO CAPFULS TO BATH WATER NOT NEEDED IN HOSPITAL)
     Route: 065
  18. OMEPRAZOLE [Concomitant]
     Active Substance: OMEPRAZOLE
     Indication: Product used for unknown indication
     Dosage: 1 DOSAGE FORM, QD (GASTRO-RESISTANT CAPSULES ONE TO BE TAKEN EACH DAY)
     Route: 065
  19. PREDNISOLONE [Concomitant]
     Active Substance: PREDNISOLONE
     Indication: Product used for unknown indication
     Dosage: 2 DOSAGE FORM, QD (TWO TO BE TAKEN EACH DAY AS PER HOSPITAL)
     Route: 065
  20. SENNA [Concomitant]
     Active Substance: SENNA LEAF\SENNOSIDES\SENNOSIDES A AND B
     Indication: Product used for unknown indication
     Dosage: 2 DOSAGE FORM, HS (TWO TO BE TAKEN AT NIGHT)
     Route: 065
  21. SIMVASTATIN [Concomitant]
     Active Substance: SIMVASTATIN
     Indication: Product used for unknown indication
     Dosage: 1 DOSAGE FORM, HS (ONE TO BE TAKEN AT NIGHT)
     Route: 065
  22. SODIUM BICARBONATE [Concomitant]
     Active Substance: SODIUM BICARBONATE
     Indication: Product used for unknown indication
     Dosage: 4 DOSAGE FORM, BID (CAPSULES FOUR TABLETS TO BE TAKEN TWICE A DAY)
     Route: 065
  23. TERBUTALINE [Concomitant]
     Active Substance: TERBUTALINE
     Indication: Product used for unknown indication
     Dosage: 1 DOSAGE FORM, PRN (500 MICROGRAMS/DOSE DRY POWDER INHALER INHALE 1 DOSE AS NEEDED - USES PRN)
     Dates: start: 20230705
  24. ZeroAQS emollient [Concomitant]
     Indication: Product used for unknown indication
     Dosage: UNK, PRN (USE AS A SOAP SUBSTITUTE)
     Route: 065

REACTIONS (2)
  - Leukopenia [Recovered/Resolved]
  - Neutropenia [Unknown]
